FAERS Safety Report 9360852 (Version 3)
Quarter: 2013Q2

REPORT INFORMATION
  Report Type: Spontaneous
  Country: DE (occurrence: DE)
  Receive Date: 20130621
  Receipt Date: 20130628
  Transmission Date: 20140414
  Serious: Yes (Death, Other)
  Sender: FDA-Public Use
  Company Number: DE-EISAI INC-E7389-03928-SPO-DE

PATIENT
  Age: 46 Year
  Sex: Female

DRUGS (6)
  1. HALAVEN [Suspect]
     Indication: BREAST CANCER METASTATIC
     Route: 041
     Dates: start: 20110629, end: 20111116
  2. STEROFUNDIN [Concomitant]
     Route: 042
  3. APREPITANT [Concomitant]
  4. DEXAMETHASONE [Concomitant]
  5. PEGFILGRASTIM [Concomitant]
  6. ZOLEDRONIC ACID [Concomitant]
     Dates: end: 20110709

REACTIONS (3)
  - Disease progression [Fatal]
  - Cauda equina syndrome [Unknown]
  - Anaemia [Recovered/Resolved]
